FAERS Safety Report 5408382-9 (Version None)
Quarter: 2007Q3

REPORT INFORMATION
  Report Type: 
  Country: None (occurrence: None)
  Receive Date: 20070806
  Receipt Date: 20070731
  Transmission Date: 20080115
  Serious: Yes (Hospitalization)
  Sender: FDA-Public Use
  Company Number: 2007AL000278

PATIENT
  Age: 40 Year
  Sex: Male

DRUGS (1)
  1. TRAMADOL HCL [Suspect]

REACTIONS (7)
  - ABNORMAL DREAMS [None]
  - ATRIAL FIBRILLATION [None]
  - CONSTIPATION [None]
  - CONTUSION [None]
  - PALPITATIONS [None]
  - POLLAKIURIA [None]
  - TREMOR [None]
